FAERS Safety Report 16837919 (Version 1)
Quarter: 2019Q3

REPORT INFORMATION
  Report Type: Spontaneous
  Country: FR (occurrence: FR)
  Receive Date: 20190923
  Receipt Date: 20190923
  Transmission Date: 20191005
  Serious: Yes (Hospitalization)
  Sender: FDA-Public Use
  Company Number: FR-TEVA-2019-FR-1110874

PATIENT
  Age: 52 Year
  Sex: Male

DRUGS (5)
  1. RITUXIMAB ((MAMMIFERE/HAMSTER/CELLULES CHO)) [Concomitant]
     Active Substance: RITUXIMAB
     Indication: LYMPHOMA
     Dosage: UNINFORMED
     Route: 042
     Dates: start: 200508, end: 200509
  2. VINDESINE (SULFATE DE) [Concomitant]
     Active Substance: VINDESINE
     Indication: LYMPHOMA
     Route: 042
     Dates: start: 200508, end: 200509
  3. CYCLOPHOSPHAMIDE. [Concomitant]
     Active Substance: CYCLOPHOSPHAMIDE
     Indication: LYMPHOMA
     Dosage: UNINFORMED
     Route: 042
     Dates: start: 200508, end: 200509
  4. DOXORUBICINE [Suspect]
     Active Substance: DOXORUBICIN
     Indication: LYMPHOMA
     Dosage: 4 CURES RECEIVED, 75MG/M2
     Route: 042
     Dates: start: 200508, end: 200509
  5. BLEOMYCINE [Concomitant]
     Active Substance: BLEOMYCIN SULFATE
     Indication: LYMPHOMA
     Route: 042
     Dates: start: 200508, end: 200509

REACTIONS (1)
  - Ejection fraction decreased [Not Recovered/Not Resolved]

NARRATIVE: CASE EVENT DATE: 20190423
